FAERS Safety Report 9710624 (Version 2)
Quarter: 2014Q2

REPORT INFORMATION
  Report Type: Spontaneous
  Country: US (occurrence: US)
  Receive Date: 20131126
  Receipt Date: 20140510
  Transmission Date: 20141212
  Serious: No
  Sender: FDA-Public Use
  Company Number: US-BRISTOL-MYERS SQUIBB COMPANY-18995605

PATIENT
  Sex: Female
  Weight: 69.39 kg

DRUGS (3)
  1. BYDUREON [Suspect]
     Indication: TYPE 2 DIABETES MELLITUS
     Route: 058
     Dates: start: 2013
  2. METFORMIN HCL [Suspect]
     Indication: BLOOD GLUCOSE INCREASED
  3. LIPITOR [Concomitant]

REACTIONS (7)
  - Injection site mass [Unknown]
  - Injection site erythema [Unknown]
  - Injection site pruritus [Unknown]
  - Injection site extravasation [Unknown]
  - Glycosylated haemoglobin increased [Unknown]
  - Injection site nodule [Unknown]
  - Product quality issue [Unknown]
